FAERS Safety Report 8356240-2 (Version None)
Quarter: 2012Q2

REPORT INFORMATION
  Report Type: 
  Country: None (occurrence: None)
  Receive Date: 20120510
  Receipt Date: 20120501
  Transmission Date: 20120825
  Serious: Yes (Hospitalization)
  Sender: FDA-Public Use
  Company Number: UTC-018293

PATIENT
  Age: 53 Year
  Sex: Female

DRUGS (12)
  1. FLONASE [Concomitant]
  2. TRACLEER [Concomitant]
  3. ALBUTEROL [Concomitant]
  4. REMODULIN [Suspect]
     Indication: PULMONARY ARTERIAL HYPERTENSION
     Dosage: 52 NANGM, SUBCUTANEOUS
     Route: 058
     Dates: start: 20111201
  5. LOVENOX [Concomitant]
  6. GLIMEPIRIDE [Concomitant]
  7. ASPIRIN [Concomitant]
  8. KLOR-CON [Concomitant]
  9. OMEPRAZOLE [Concomitant]
  10. OXYGEN (OXYGEN) [Concomitant]
  11. PERCOCET [Concomitant]
  12. RAMIPRIL [Concomitant]

REACTIONS (17)
  - ASTHENIA [None]
  - WEIGHT INCREASED [None]
  - INFECTION PROTOZOAL [None]
  - ANAEMIA OF CHRONIC DISEASE [None]
  - BODY TEMPERATURE DECREASED [None]
  - HYPOTENSION [None]
  - INDURATION [None]
  - URINARY TRACT INFECTION [None]
  - HEART RATE INCREASED [None]
  - OXYGEN SATURATION DECREASED [None]
  - ACUTE PRERENAL FAILURE [None]
  - BEDRIDDEN [None]
  - DIARRHOEA [None]
  - FLUID OVERLOAD [None]
  - ABASIA [None]
  - DYSSTASIA [None]
  - INTERNATIONAL NORMALISED RATIO INCREASED [None]
